FAERS Safety Report 8980243 (Version 1)
Quarter: 2012Q4

REPORT INFORMATION
  Report Type: 
  Country: IL (occurrence: IL)
  Receive Date: 20121221
  Receipt Date: 20121221
  Transmission Date: 20130627
  Serious: Yes (Hospitalization)
  Sender: FDA-Public Use
  Company Number: PHHY2012IL115778

PATIENT
  Sex: Female

DRUGS (2)
  1. SANDOSTATIN LAR [Suspect]
     Indication: ACROMEGALY
     Dosage: 20 mg, UNK
     Dates: start: 20070816
  2. SANDOSTATIN LAR [Suspect]
     Dosage: 20 mg, UNK
     Dates: start: 20121118

REACTIONS (2)
  - Fall [Unknown]
  - Femoral neck fracture [Unknown]
